FAERS Safety Report 7910893-9 (Version None)
Quarter: 2011Q4

REPORT INFORMATION
  Report Type: 
  Country: None (occurrence: None)
  Receive Date: 20111114
  Receipt Date: 20111102
  Transmission Date: 20120403
  Serious: No
  Sender: FDA-Public Use
  Company Number: US-BIOGENIDEC-2011BI018766

PATIENT
  Age: 64 Year
  Sex: Female

DRUGS (30)
  1. CLINDAMYCIN [Concomitant]
  2. DIPHEN/ATROPINE [Concomitant]
  3. MAGNESIUM [Concomitant]
  4. PHENOBARB [Concomitant]
     Indication: CONVULSION
     Route: 048
  5. LIDODERM [Concomitant]
     Indication: PAIN
  6. LUNESTA [Concomitant]
     Indication: SLEEP DISORDER
     Route: 048
  7. FLONASE [Concomitant]
     Indication: SINUS DISORDER
     Dosage: DOSE UNIT:50
  8. VICODIN [Concomitant]
     Indication: PAIN
  9. MULTI-VITAMIN [Concomitant]
  10. PHENERGAN [Concomitant]
     Indication: NAUSEA
     Route: 048
  11. FLECTOR [Concomitant]
     Indication: PAIN
  12. VITAMIN D [Concomitant]
  13. FLORANEX [Concomitant]
  14. E STRING (NOS) [Concomitant]
  15. KEPPRA XR [Concomitant]
     Indication: CONVULSION
     Route: 048
  16. LEVOXYL [Concomitant]
     Indication: HYPOTHYROIDISM
  17. ELIDEL [Concomitant]
     Indication: SKIN FISSURES
  18. DURAGESIC-100 [Concomitant]
     Indication: PAIN
     Dosage: DOSE UNIT:75
  19. PROVIGIL [Concomitant]
     Indication: POOR QUALITY SLEEP
     Route: 048
  20. BACLOFEN [Concomitant]
     Route: 048
  21. VALIUM [Concomitant]
     Indication: MUSCLE SPASMS
  22. FLORICET [Concomitant]
     Indication: HEADACHE
  23. BONIVA [Concomitant]
     Indication: BONE DENSITOMETRY
     Route: 048
  24. GLUCOSAMINE [Concomitant]
  25. TYSABRI [Suspect]
     Indication: MULTIPLE SCLEROSIS
     Route: 042
     Dates: start: 20080602, end: 20110408
  26. VIMPAT [Concomitant]
     Indication: CONVULSION
  27. MOBIC [Concomitant]
     Indication: ARTHRALGIA
  28. ALBUTEROL [Concomitant]
  29. GLYCOLAX [Concomitant]
     Indication: CONSTIPATION
     Dosage: DOSE UNIT:17
  30. VITAMIN B-12 [Concomitant]

REACTIONS (2)
  - FATIGUE [None]
  - CLOSTRIDIAL INFECTION [None]
